FAERS Safety Report 12105758 (Version 1)
Quarter: 2016Q1

REPORT INFORMATION
  Report Type: Spontaneous
  Country: RU (occurrence: RU)
  Receive Date: 20160223
  Receipt Date: 20160223
  Transmission Date: 20160526
  Serious: Yes (Hospitalization, Other)
  Sender: FDA-Public Use
  Company Number: RU-VIIV HEALTHCARE LIMITED-RU2016GSK025182

PATIENT

DRUGS (1)
  1. RETROVIR [Suspect]
     Active Substance: ZIDOVUDINE
     Indication: PROPHYLAXIS AGAINST HIV INFECTION
     Dosage: UNK
     Route: 064
     Dates: start: 201512

REACTIONS (3)
  - Foetal exposure during pregnancy [Unknown]
  - Hydronephrosis [Not Recovered/Not Resolved]
  - Decreased appetite [Not Recovered/Not Resolved]
